FAERS Safety Report 24311112 (Version 1)
Quarter: 2024Q3

REPORT INFORMATION
  Report Type: Spontaneous
  Country: PL (occurrence: PL)
  Receive Date: 20240912
  Receipt Date: 20240912
  Transmission Date: 20241016
  Serious: Yes (Death, Other)
  Sender: ACCORD
  Company Number: PL-EMA-DD-20240808-7483181-141425

PATIENT
  Age: 30 Year
  Sex: Male

DRUGS (5)
  1. METHOTREXATE [Suspect]
     Active Substance: METHOTREXATE
     Indication: Chronic graft versus host disease
  2. MYCOPHENOLATE MOFETIL [Suspect]
     Active Substance: MYCOPHENOLATE MOFETIL
     Indication: Graft versus host disease
  3. FLUTICASONE [Suspect]
     Active Substance: FLUTICASONE
     Indication: Chronic graft versus host disease
     Dosage: UNK
  4. RUXOLITINIB [Suspect]
     Active Substance: RUXOLITINIB
     Indication: Product used for unknown indication
  5. MOMETASONE FUROATE [Suspect]
     Active Substance: MOMETASONE FUROATE
     Indication: Chronic graft versus host disease
     Dosage: UNK

REACTIONS (4)
  - Disease recurrence [Fatal]
  - Drug resistance [Fatal]
  - Pneumonia [Fatal]
  - Condition aggravated [Fatal]
